FAERS Safety Report 15209016 (Version 1)
Quarter: 2018Q3

REPORT INFORMATION
  Report Type: Spontaneous
  Country: FR (occurrence: FR)
  Receive Date: 20180727
  Receipt Date: 20180727
  Transmission Date: 20181010
  Serious: Yes (Other)
  Sender: FDA-Public Use
  Company Number: FR-MYLANLABS-2018M1044837

PATIENT
  Age: 63 Year
  Sex: Female
  Weight: 62 kg

DRUGS (5)
  1. OMEPRAZOLE MYLAN 20 MG, G?LULE GASTRO?R?SISTANTE [Suspect]
     Active Substance: OMEPRAZOLE
     Indication: GASTROOESOPHAGEAL REFLUX DISEASE
     Dosage: 1 DF, QD
     Route: 048
     Dates: start: 20171001, end: 201712
  2. KETOPROFEN. [Suspect]
     Active Substance: KETOPROFEN
     Indication: OSTEOARTHRITIS
     Dosage: UNK
     Route: 048
  3. LEVOTHYROX [Concomitant]
     Active Substance: LEVOTHYROXINE
     Indication: PRODUCT USED FOR UNKNOWN INDICATION
     Dosage: UNK
  4. OMEPRAZOLE MYLAN 20 MG, G?LULE GASTRO?R?SISTANTE [Suspect]
     Active Substance: OMEPRAZOLE
     Dosage: 1 DF, QD
     Route: 048
     Dates: start: 201712, end: 201712
  5. ATORVASTATINE                      /01326101/ [Concomitant]
     Active Substance: ATORVASTATIN
     Indication: PRODUCT USED FOR UNKNOWN INDICATION
     Dosage: UNK

REACTIONS (4)
  - Anxiety [Recovered/Resolved]
  - Insomnia [Recovered/Resolved]
  - Cardiac disorder [Recovered/Resolved]
  - Arrhythmia [Recovered/Resolved]

NARRATIVE: CASE EVENT DATE: 20171202
